FAERS Safety Report 5340849-4 (Version None)
Quarter: 2007Q2

REPORT INFORMATION
  Report Type: 
  Country: None (occurrence: None)
  Receive Date: 20070405
  Receipt Date: 20061211
  Transmission Date: 20071010
  Serious: No
  Sender: FDA-Public Use
  Company Number: US200612001737

PATIENT
  Age: 60 Year
  Sex: Female

DRUGS (7)
  1. CYMBALTA [Suspect]
     Indication: CHRONIC FATIGUE SYNDROME
     Dosage: 30 MG, ORAL
     Route: 048
     Dates: start: 20061126, end: 20061126
  2. NEURONTIN [Concomitant]
  3. WELLBUTRIN [Concomitant]
  4. OXYCONTIN [Concomitant]
  5. CLONAZEPAM [Concomitant]
  6. AMBIEN [Concomitant]
  7. PROTONIX [Concomitant]

REACTIONS (10)
  - COMMUNICATION DISORDER [None]
  - COORDINATION ABNORMAL [None]
  - DIPLOPIA [None]
  - EUPHORIC MOOD [None]
  - FEELING ABNORMAL [None]
  - GAIT DISTURBANCE [None]
  - HYPERSOMNIA [None]
  - IMPAIRED DRIVING ABILITY [None]
  - MUSCLE TWITCHING [None]
  - SOCIAL AVOIDANT BEHAVIOUR [None]
